FAERS Safety Report 17108944 (Version 2)
Quarter: 2019Q4

REPORT INFORMATION
  Report Type: Spontaneous
  Country: DE (occurrence: DE)
  Receive Date: 20191204
  Receipt Date: 20191218
  Transmission Date: 20200122
  Serious: Yes (Other)
  Sender: FDA-Public Use
  Company Number: DE-009507513-1912DEU000594

PATIENT
  Sex: Male

DRUGS (2)
  1. ONCOTICE [Suspect]
     Active Substance: BACILLUS CALMETTE-GUERIN SUBSTRAIN TICE LIVE ANTIGEN
     Indication: BLADDER CANCER STAGE III
     Dosage: BY THE ROUTE OF INSTILLATION
     Route: 043
  2. ONCOTICE [Suspect]
     Active Substance: BACILLUS CALMETTE-GUERIN SUBSTRAIN TICE LIVE ANTIGEN
     Indication: BLADDER CANCER RECURRENT

REACTIONS (4)
  - Treatment failure [Unknown]
  - Renal failure [Unknown]
  - Drug ineffective [Unknown]
  - Ureteric cancer [Unknown]
